FAERS Safety Report 5174215-1 (Version None)
Quarter: 2006Q4

REPORT INFORMATION
  Report Type: 
  Country: None (occurrence: None)
  Receive Date: 20061214
  Receipt Date: 20061204
  Transmission Date: 20070319
  Serious: Yes (Hospitalization)
  Sender: FDA-Public Use
  Company Number: US-ROCHE-474014

PATIENT
  Sex: Female

DRUGS (1)
  1. LARIAM [Suspect]
     Indication: DRUG USE FOR UNKNOWN INDICATION
     Route: 065
     Dates: start: 20061115

REACTIONS (4)
  - CREATININE RENAL CLEARANCE INCREASED [None]
  - HUMAN EHRLICHIOSIS [None]
  - NEPHRITIS [None]
  - VASCULITIS [None]
